FAERS Safety Report 9758493 (Version 1)
Quarter: 2013Q4

REPORT INFORMATION
  Report Type: Spontaneous
  Country: US (occurrence: None)
  Receive Date: 20131216
  Receipt Date: 20131216
  Transmission Date: 20140711
  Serious: No
  Sender: FDA-Public Use
  Company Number: 1000044951

PATIENT
  Age: 88 Year
  Sex: Female

DRUGS (1)
  1. LINZESS (LINACLOTIDE) (145 MICROGRAM, CAPSULES) [Suspect]
     Dosage: 145 MCG (145 MCG,1 IN 1 D),ORAL ?72.5 MCG (72.5 MCG,1 IN 1 D), ORAL

REACTIONS (2)
  - Diarrhoea [None]
  - Drug ineffective [None]
